FAERS Safety Report 16866978 (Version 1)
Quarter: 2019Q4

REPORT INFORMATION
  Report Type: Spontaneous
  Country: US (occurrence: US)
  Receive Date: 20190929
  Receipt Date: 20190929
  Transmission Date: 20200122
  Serious: Yes (Life-Threatening)
  Sender: FDA-Public Use
  Company Number: None

PATIENT
  Age: 49 Year
  Sex: Male
  Weight: 67.8 kg

DRUGS (15)
  1. HEPARIN 5000 UNITS SQ INJECTION [Concomitant]
     Dates: start: 20190923, end: 20190924
  2. AMLODIPINE 10 MG TABLET [Concomitant]
     Active Substance: AMLODIPINE BESYLATE
     Dates: start: 20190923, end: 20190924
  3. MAGNESIUM OXIDE 400 MG TABLET [Concomitant]
     Dates: start: 20190923, end: 20190924
  4. ASPIRIN 325 MG TABLET [Concomitant]
     Dates: start: 20190923, end: 20190924
  5. DIAZEPAM 2 MG TABLET [Concomitant]
     Active Substance: DIAZEPAM
     Dates: start: 20190924, end: 20190924
  6. ISOVUE 370 (76%) 100 ML [Concomitant]
     Dates: start: 20190923, end: 20190923
  7. DIAZEPAM 5 MG TABLET [Concomitant]
     Dates: start: 20190924, end: 20190924
  8. LOSARTAN. [Suspect]
     Active Substance: LOSARTAN
     Indication: CHRONIC KIDNEY DISEASE
     Route: 048
     Dates: start: 20190924, end: 20190924
  9. FOLIC ACID 1 MG TABLET [Concomitant]
     Active Substance: FOLIC ACID
     Dates: start: 20190924, end: 20190924
  10. THIAMINE 100 MG TABLET [Concomitant]
     Dates: start: 20190924, end: 20190924
  11. MAGNESIUM SULFATE 3G IV [Concomitant]
     Dates: start: 20190923, end: 20190923
  12. ACETAMINOPHEN 325 MG TABLET [Concomitant]
     Dates: start: 20190923, end: 20190923
  13. LOSARTAN. [Suspect]
     Active Substance: LOSARTAN
     Indication: HYPERTENSION
     Route: 048
     Dates: start: 20190924, end: 20190924
  14. PERCOCET 5-325 MG TABLET [Concomitant]
     Dates: start: 20190923, end: 20190923
  15. TOPIRAMATE 25 MG TABLET [Concomitant]
     Active Substance: TOPIRAMATE
     Dates: start: 20190924, end: 20190924

REACTIONS (1)
  - Angioedema [None]

NARRATIVE: CASE EVENT DATE: 20190924
